FAERS Safety Report 11599231 (Version 2)
Quarter: 2015Q4

REPORT INFORMATION
  Report Type: Spontaneous
  Country: DE (occurrence: DE)
  Receive Date: 20151006
  Receipt Date: 20151113
  Transmission Date: 20160304
  Serious: Yes (Other)
  Sender: FDA-Public Use
  Company Number: DE-ROCHE-1642534

PATIENT
  Age: 48 Year
  Sex: Female
  Weight: 54 kg

DRUGS (2)
  1. ZOMETA [Concomitant]
     Active Substance: ZOLEDRONIC ACID
     Indication: METASTASES TO BONE
     Route: 042
     Dates: start: 20111123
  2. KADCYLA [Suspect]
     Active Substance: ADO-TRASTUZUMAB EMTANSINE
     Indication: BREAST CANCER METASTATIC
     Dosage: 18 CYCLES
     Route: 042
     Dates: start: 20140926, end: 20150924

REACTIONS (4)
  - Paraesthesia [Not Recovered/Not Resolved]
  - Neuropathy peripheral [Unknown]
  - Visual impairment [Not Recovered/Not Resolved]
  - Thrombocytopenia [Unknown]

NARRATIVE: CASE EVENT DATE: 201508
